FAERS Safety Report 6793361-X (Version None)
Quarter: 2010Q2

REPORT INFORMATION
  Report Type: 
  Country: None (occurrence: None)
  Receive Date: 20100624
  Receipt Date: 20100106
  Transmission Date: 20101027
  Serious: No
  Sender: FDA-Public Use
  Company Number: US-MYLANLABS-2009S1022115

PATIENT
  Age: 55 Year
  Sex: Male

DRUGS (7)
  1. CLOZAPINE [Suspect]
     Indication: SCHIZOPHRENIA, PARANOID TYPE
     Route: 048
     Dates: end: 20091223
  2. CLOZAPINE [Suspect]
     Route: 048
     Dates: start: 20091223
  3. CLOZAPINE [Suspect]
     Route: 048
     Dates: end: 20100104
  4. LORAZEPAM [Concomitant]
     Route: 048
  5. DEPAKOTE ER [Concomitant]
     Route: 048
  6. GEODON [Concomitant]
     Route: 048
  7. MIRAPEX [Concomitant]
     Route: 048

REACTIONS (1)
  - GRANULOCYTOPENIA [None]
